FAERS Safety Report 8050784-9 (Version None)
Quarter: 2012Q1

REPORT INFORMATION
  Report Type: 
  Country: None (occurrence: None)
  Receive Date: 20120117
  Receipt Date: 20120112
  Transmission Date: 20120608
  Serious: Yes (Death, Life-Threatening, Hospitalization)
  Sender: FDA-Public Use
  Company Number: US-GILEAD-2011-0048663

PATIENT
  Sex: Female

DRUGS (18)
  1. LETAIRIS [Suspect]
     Indication: PULMONARY HYPERTENSION
     Dosage: 5 MG, UNK
     Route: 048
     Dates: start: 20110701
  2. PREDNISONE [Concomitant]
  3. REVATIO [Concomitant]
  4. LIDODERM [Concomitant]
  5. POTASSIUM CHLORIDE [Concomitant]
  6. SPIRIVA [Concomitant]
  7. LORTAB [Concomitant]
  8. ZANTAC [Concomitant]
  9. ADVAIR DISKUS 100/50 [Concomitant]
  10. VENTOLIN HFA [Concomitant]
  11. AUGMENTIN '125' [Concomitant]
  12. MIRALAX [Concomitant]
  13. XANAX [Concomitant]
  14. LASIX [Concomitant]
  15. ALBUTEROL [Concomitant]
  16. LEXAPRO [Concomitant]
  17. FLOVENT [Concomitant]
  18. OXYGEN [Concomitant]

REACTIONS (4)
  - PULMONARY HYPERTENSION [None]
  - PULMONARY EMBOLISM [None]
  - CHRONIC OBSTRUCTIVE PULMONARY DISEASE [None]
  - ACUTE RESPIRATORY FAILURE [None]
